FAERS Safety Report 8356896-4 (Version None)
Quarter: 2012Q2

REPORT INFORMATION
  Report Type: 
  Country: None (occurrence: None)
  Receive Date: 20120514
  Receipt Date: 20120508
  Transmission Date: 20120825
  Serious: Yes (Hospitalization)
  Sender: FDA-Public Use
  Company Number: US-B.I. PHARMACEUTICALS,INC./RIDGEFIELD-2012-BP-07167BP

PATIENT
  Sex: Female
  Weight: 98.88 kg

DRUGS (10)
  1. LASIX [Concomitant]
  2. SENSIPAR [Concomitant]
  3. LOSARTAN POTASSIUM [Concomitant]
  4. LANTUS [Concomitant]
     Indication: TYPE 2 DIABETES MELLITUS
     Dosage: 15 U
     Dates: start: 20050101
  5. ALLOPURINOL [Concomitant]
  6. PRILOSEC [Concomitant]
  7. ENABLEX [Concomitant]
  8. PRADAXA [Suspect]
     Indication: ATRIAL FIBRILLATION
     Dosage: 150 MG
     Route: 048
     Dates: start: 20101223, end: 20120412
  9. ATENOLOL [Concomitant]
  10. ZOCOR [Concomitant]

REACTIONS (1)
  - GASTROINTESTINAL HAEMORRHAGE [None]
